FAERS Safety Report 15808052 (Version 1)
Quarter: 2019Q1

REPORT INFORMATION
  Report Type: Report from Study
  Country: US (occurrence: US)
  Receive Date: 20190110
  Receipt Date: 20190110
  Transmission Date: 20190417
  Serious: Yes (Hospitalization)
  Sender: FDA-Public Use
  Company Number: US-JNJFOC-20180618632

PATIENT
  Age: 86 Year
  Sex: Female

DRUGS (6)
  1. MULTIVITAMIN AND MINERAL [Concomitant]
  2. IMBRUVICA [Suspect]
     Active Substance: IBRUTINIB
     Indication: WALDENSTROM^S MACROGLOBULINAEMIA
     Dosage: 280 MG, QD
     Route: 048
     Dates: start: 20180816
  3. VANCOMYCIN [Concomitant]
     Active Substance: VANCOMYCIN
  4. IMBRUVICA [Suspect]
     Active Substance: IBRUTINIB
     Indication: WALDENSTROM^S MACROGLOBULINAEMIA
     Dosage: 280 MG, QD
     Route: 048
     Dates: start: 201710, end: 201805
  5. MULTIVITAMINS [Concomitant]
     Active Substance: VITAMINS
  6. VITAMIN D [Concomitant]
     Active Substance: CHOLECALCIFEROL

REACTIONS (9)
  - Pain [Unknown]
  - Incorrect dose administered [Unknown]
  - Clostridial sepsis [Unknown]
  - Dyspepsia [Unknown]
  - Diarrhoea [Unknown]
  - Off label use [Unknown]
  - Dental caries [Unknown]
  - Dental operation [Recovered/Resolved]
  - Tooth infection [Unknown]

NARRATIVE: CASE EVENT DATE: 2017
